FAERS Safety Report 7067996-3 (Version None)
Quarter: 2010Q4

REPORT INFORMATION
  Report Type: 
  Country: None (occurrence: None)
  Receive Date: 20101027
  Receipt Date: 20101027
  Transmission Date: 20110411
  Serious: Yes (Other)
  Sender: FDA-Public Use
  Company Number: None

PATIENT
  Sex: Male
  Weight: 7.2576 kg

DRUGS (1)
  1. HYLAND'S TEETHING TABLETS [Suspect]

REACTIONS (2)
  - AGITATION [None]
  - SOMNOLENCE [None]
